FAERS Safety Report 6855113-1 (Version None)
Quarter: 2010Q3

REPORT INFORMATION
  Report Type: 
  Country: None (occurrence: None)
  Receive Date: 20100717
  Receipt Date: 20081016
  Transmission Date: 20110219
  Serious: Yes (Other)
  Sender: FDA-Public Use
  Company Number: US-PFIZER INC-2008000506

PATIENT
  Sex: Female
  Weight: 90.7 kg

DRUGS (7)
  1. CHANTIX [Suspect]
     Indication: SMOKING CESSATION THERAPY
     Route: 048
     Dates: start: 20080701
  2. DESVENLAFAXINE [Concomitant]
  3. MORPHINE [Concomitant]
  4. HYDROMORPHONE [Concomitant]
  5. LYRICA [Concomitant]
  6. NEXIUM [Concomitant]
  7. SOMA [Concomitant]

REACTIONS (7)
  - ABNORMAL DREAMS [None]
  - ELECTROENCEPHALOGRAM ABNORMAL [None]
  - EMOTIONAL DISORDER [None]
  - HEADACHE [None]
  - HYPERTENSION [None]
  - NAUSEA [None]
  - STRESS [None]
